FAERS Safety Report 9219455 (Version 1)
Quarter: 2013Q2

REPORT INFORMATION
  Report Type: Spontaneous
  Country: US (occurrence: None)
  Receive Date: 20130408
  Receipt Date: 20130408
  Transmission Date: 20140414
  Serious: Yes (Hospitalization)
  Sender: FDA-Public Use
  Company Number: None

PATIENT
  Age: 43 Year
  Sex: Female
  Weight: 77.11 kg

DRUGS (2)
  1. APLISOL [Suspect]
     Indication: TUBERCULIN TEST
     Route: 023
     Dates: start: 20130327
  2. APLISOL [Suspect]
     Indication: MYCOBACTERIUM TUBERCULOSIS COMPLEX TEST
     Route: 023
     Dates: start: 20130327

REACTIONS (2)
  - Cough [None]
  - Urticaria [None]
